FAERS Safety Report 23092899 (Version 1)
Quarter: 2023Q4

REPORT INFORMATION
  Report Type: Spontaneous
  Country: US (occurrence: US)
  Receive Date: 20231021
  Receipt Date: 20231021
  Transmission Date: 20240110
  Serious: Yes (Life-Threatening, Hospitalization, Other)
  Sender: FDA-Public Use
  Company Number: US-MLMSERVICE-20231004-4581019-1

PATIENT
  Age: 49 Year
  Sex: Male

DRUGS (1)
  1. CISPLATIN [Suspect]
     Active Substance: CISPLATIN
     Indication: Carcinoid tumour

REACTIONS (9)
  - Hepatic enzyme increased [Recovering/Resolving]
  - Tumour lysis syndrome [Recovering/Resolving]
  - Acute kidney injury [Recovering/Resolving]
  - Urinary tract infection [Recovering/Resolving]
  - Hepatomegaly [Recovering/Resolving]
  - Septic shock [Recovering/Resolving]
  - Acute respiratory failure [Recovering/Resolving]
  - Toxic encephalopathy [Recovering/Resolving]
  - Off label use [Unknown]
